FAERS Safety Report 21285748 (Version 1)
Quarter: 2022Q3

REPORT INFORMATION
  Report Type: Spontaneous
  Country: US (occurrence: None)
  Receive Date: 20220901
  Receipt Date: 20220901
  Transmission Date: 20221027
  Serious: No
  Sender: FDA-Public Use
  Company Number: None

PATIENT
  Age: 60 Year
  Sex: Male
  Weight: 55.7 kg

DRUGS (2)
  1. EVEROLIMUS [Suspect]
     Active Substance: EVEROLIMUS
     Indication: Neuroendocrine tumour
     Dosage: FREQUENCY : TWICE A DAY;?
     Route: 048
  2. EVEROLIMUS [Suspect]
     Active Substance: EVEROLIMUS
     Indication: Metastatic neoplasm

REACTIONS (5)
  - Product blister packaging issue [None]
  - Product dose omission in error [None]
  - Product communication issue [None]
  - Packaging design issue [None]
  - Accidental exposure to product [None]

NARRATIVE: CASE EVENT DATE: 20220901
